FAERS Safety Report 16143357 (Version 1)
Quarter: 2019Q2

REPORT INFORMATION
  Report Type: Report from Study
  Country: CA (occurrence: CA)
  Receive Date: 20190401
  Receipt Date: 20190401
  Transmission Date: 20190711
  Serious: Yes (Hospitalization)
  Sender: FDA-Public Use
  Company Number: CA-JNJFOC-20190231272

PATIENT
  Age: 79 Year
  Sex: Male

DRUGS (19)
  1. DUTASTERIDE. [Concomitant]
     Active Substance: DUTASTERIDE
  2. HYDROMORPH CONTIN [Concomitant]
     Active Substance: HYDROMORPHONE
  3. SULFATE FERREUX [Concomitant]
  4. PREDNISONE. [Concomitant]
     Active Substance: PREDNISONE
  5. AMLODIPINE [Concomitant]
     Active Substance: AMLODIPINE BESYLATE
  6. GABAPENTIN. [Concomitant]
     Active Substance: GABAPENTIN
  7. TAMSULOSIN [Concomitant]
     Active Substance: TAMSULOSIN
  8. DOCUSATE [Concomitant]
     Active Substance: DOCUSATE
  9. APIDRA SOLOSTAR [Concomitant]
     Active Substance: INSULIN GLULISINE
  10. CALCIUM [Concomitant]
     Active Substance: CALCIUM
  11. PLAQUENIL [Concomitant]
     Active Substance: HYDROXYCHLOROQUINE SULFATE
  12. ALENDRONATE [Concomitant]
     Active Substance: ALENDRONATE SODIUM
  13. ELIQUIS [Concomitant]
     Active Substance: APIXABAN
  14. SIMPONI [Suspect]
     Active Substance: GOLIMUMAB
     Indication: PSORIATIC ARTHROPATHY
     Route: 058
     Dates: start: 20181119
  15. BISOPROLOL [Concomitant]
     Active Substance: BISOPROLOL
  16. FUROSEMIDE. [Concomitant]
     Active Substance: FUROSEMIDE
  17. LANSOPRAZOL [Concomitant]
     Active Substance: LANSOPRAZOLE
  18. VITAMINE D [Concomitant]
     Active Substance: CHOLECALCIFEROL
  19. LANTUS [Concomitant]
     Active Substance: INSULIN GLARGINE

REACTIONS (3)
  - Infection [Unknown]
  - Urinary tract infection [Unknown]
  - Abdominal mass [Unknown]

NARRATIVE: CASE EVENT DATE: 20190218
